FAERS Safety Report 12654289 (Version 1)
Quarter: 2016Q3

REPORT INFORMATION
  Report Type: Spontaneous
  Country: US (occurrence: None)
  Receive Date: 20160815
  Receipt Date: 20160815
  Transmission Date: 20161109
  Serious: No
  Sender: FDA-Public Use
  Company Number: None

PATIENT
  Age: 24 Year
  Sex: Male
  Weight: 99.79 kg

DRUGS (3)
  1. FLUOROMETHOLONE. [Suspect]
     Active Substance: FLUOROMETHOLONE
     Indication: EYE INFLAMMATION
     Route: 047
     Dates: start: 20160811
  2. ALEVE [Concomitant]
     Active Substance: NAPROXEN SODIUM
  3. ZOLOFT [Concomitant]
     Active Substance: SERTRALINE HYDROCHLORIDE

REACTIONS (1)
  - Ageusia [None]

NARRATIVE: CASE EVENT DATE: 20160811
